FAERS Safety Report 7207336-X (Version None)
Quarter: 2010Q4

REPORT INFORMATION
  Report Type: 
  Country: None (occurrence: None)
  Receive Date: 20101217
  Receipt Date: 20101202
  Transmission Date: 20110411
  Serious: Yes (Other)
  Sender: FDA-Public Use
  Company Number: 1000017504

PATIENT
  Age: 41 Year
  Sex: Female
  Weight: 95 kg

DRUGS (8)
  1. ESCITALOPRAM [Suspect]
     Indication: DEPRESSION
     Dosage: 20 MG (20 MG, 1 IN 1 D), ORAL
     Route: 048
     Dates: start: 20081201, end: 20100915
  2. CORTISONE [Suspect]
     Indication: MULTIPLE SCLEROSIS
     Dosage: ORAL
     Route: 048
  3. MAGNETRANS EXTRA (MAGNESIUM OXIDE) (MAGNESIUM OXIDE) [Concomitant]
  4. VALETTE (CERTOSTAT) (CERTOSTAT) [Concomitant]
  5. REBIF (INTERFERON BETA) (INTERFERON BETA) [Concomitant]
  6. VIGANTOLETTEN (COLECALCIFEROL) (COLECALCIFEROL) [Concomitant]
  7. IBUPROFEN [Concomitant]
  8. PANTOPRAZOL (PANTOPRAZOLE SODIUM) (PANTOPRAZOLE SODIUM) [Concomitant]

REACTIONS (4)
  - BLOOD TRIGLYCERIDES INCREASED [None]
  - FEELING COLD [None]
  - HYPERHIDROSIS [None]
  - WEIGHT INCREASED [None]
